FAERS Safety Report 7070468-3 (Version None)
Quarter: 2010Q4

REPORT INFORMATION
  Report Type: 
  Country: None (occurrence: None)
  Receive Date: 20101028
  Receipt Date: 20101028
  Transmission Date: 20110411
  Serious: No
  Sender: FDA-Public Use
  Company Number: None

PATIENT
  Sex: Male
  Weight: 74.8435 kg

DRUGS (1)
  1. SPIRONOLACTONE [Suspect]
     Indication: BLOOD PRESSURE
     Dosage: 25 MG 1 PER DAY ORAL
     Route: 048
     Dates: start: 20100917, end: 20100928

REACTIONS (1)
  - RASH [None]
